FAERS Safety Report 4368092-6 (Version None)
Quarter: 2004Q2

REPORT INFORMATION
  Report Type: 
  Country: None (occurrence: None)
  Receive Date: 20040602
  Receipt Date: 20040419
  Transmission Date: 20050107
  Serious: Yes (Hospitalization, Congenital Anomaly)
  Sender: FDA-Public Use
  Company Number: US-AMGEN-US073184

PATIENT
  Sex: Female
  Weight: 77.6 kg

DRUGS (14)
  1. ENBREL [Suspect]
     Indication: RHEUMATOID ARTHRITIS
     Route: 058
     Dates: start: 20030201, end: 20040113
  2. ARAVA [Concomitant]
     Route: 048
     Dates: start: 19991201, end: 20031218
  3. CYTOTEC [Concomitant]
  4. PREVACID [Concomitant]
  5. MULTI-VITAMINS [Concomitant]
  6. ASPIRIN [Concomitant]
  7. CALCIUM [Concomitant]
  8. OGEN [Concomitant]
  9. ATIVAN [Concomitant]
  10. NEURONTIN [Concomitant]
  11. OXYCONTIN [Concomitant]
  12. GLYBURIDE [Concomitant]
  13. DARVOCET-N 100 [Concomitant]
  14. VIOXX [Concomitant]

REACTIONS (12)
  - ANEURYSM [None]
  - CONGENITAL ATRIAL SEPTAL DEFECT [None]
  - DIASTOLIC DYSFUNCTION [None]
  - HYPONATRAEMIA [None]
  - INTERVERTEBRAL DISCITIS [None]
  - INTRACARDIAC THROMBUS [None]
  - PANCREATITIS [None]
  - PORTAL VEIN THROMBOSIS [None]
  - SHIFT TO THE LEFT [None]
  - SPLENIC VEIN THROMBOSIS [None]
  - STAPHYLOCOCCAL SEPSIS [None]
  - VENTRICULAR HYPOKINESIA [None]
